FAERS Safety Report 18440332 (Version 1)
Quarter: 2020Q4

REPORT INFORMATION
  Report Type: Report from Study
  Country: IE (occurrence: IE)
  Receive Date: 20201029
  Receipt Date: 20201029
  Transmission Date: 20210114
  Serious: Yes (Other)
  Sender: FDA-Public Use
  Company Number: IE-TEVA-2020-IE-1842671

PATIENT
  Sex: Female

DRUGS (3)
  1. CANDESARTAN. [Concomitant]
     Active Substance: CANDESARTAN
     Dosage: 16 MG
  2. AJOVY [Suspect]
     Active Substance: FREMANEZUMAB-VFRM
     Route: 058
  3. OMEGA 3 [Concomitant]
     Active Substance: OMEGA-3 FATTY ACIDS

REACTIONS (1)
  - Vision blurred [Not Recovered/Not Resolved]
